FAERS Safety Report 11842781 (Version 3)
Quarter: 2016Q3

REPORT INFORMATION
  Report Type: Report from Study
  Country: JP (occurrence: JP)
  Receive Date: 20151216
  Receipt Date: 20160802
  Transmission Date: 20161109
  Serious: Yes (Hospitalization)
  Sender: FDA-Public Use
  Company Number: JP-ASTRAZENECA-2015SF19872

PATIENT
  Age: 62 Year
  Sex: Male

DRUGS (9)
  1. TRAZENTA [Concomitant]
     Active Substance: LINAGLIPTIN
     Indication: DIABETES MELLITUS
     Dosage: 5 MG; NUMBER OF SEPARATE DOSAGES UNKNOWN
     Route: 065
     Dates: start: 20130713
  2. IMIDAPRIL HYDROCHLORIDE [Concomitant]
     Active Substance: IMIDAPRIL HYDROCHLORIDE
     Indication: HYPERTENSION
     Dosage: 2.5 MG; NUMBER OF SEPARATE DOSAGES UNKNOWN
     Route: 065
     Dates: start: 20130415, end: 20130712
  3. LANDEL 40 [Concomitant]
     Indication: HYPERTENSION
     Dosage: 40 MG EVERY DAY; NUMBER OF SEPARATE DOSAGES UNKNOWN
     Route: 065
     Dates: start: 20131101
  4. LANTUS [Concomitant]
     Active Substance: INSULIN GLARGINE
     Indication: DIABETES MELLITUS
     Dosage: 4 IU; NUMBER OF SEPARATE DOSAGES UNKNOWN
     Route: 065
     Dates: start: 20130107
  5. AZILVA [Concomitant]
     Active Substance: AZILSARTAN KAMEDOXOMIL
     Indication: HYPERTENSION
     Dosage: 20 MG; NUMBER OF SEPARATE DOSAGES UNKNOWN
     Route: 065
     Dates: start: 20130713
  6. CRESTOR [Suspect]
     Active Substance: ROSUVASTATIN CALCIUM
     Indication: HYPERCHOLESTEROLAEMIA
     Route: 048
     Dates: start: 20130527
  7. EQUA [Concomitant]
     Active Substance: VILDAGLIPTIN
     Indication: DIABETES MELLITUS
     Dosage: 100 MG; NUMBER OF SEPARATE DOSAGES UNKNOWN
     Route: 065
     Dates: start: 20130304, end: 20130712
  8. SUREPOST [Concomitant]
     Active Substance: REPAGLINIDE
     Indication: DIABETES MELLITUS
     Dosage: 1 MG; NUMBER OF SEPARATE DOSAGES UNKNOWN
     Route: 065
     Dates: start: 20130304, end: 20131101
  9. SUREPOST [Concomitant]
     Active Substance: REPAGLINIDE
     Indication: DIABETES MELLITUS
     Dosage: 1 MG; NUMBER OF SEPARATE DOSAGES UNKNOWN
     Route: 065
     Dates: start: 20131125, end: 20131224

REACTIONS (2)
  - Cardiac failure acute [Recovering/Resolving]
  - Myocardial infarction [Recovering/Resolving]

NARRATIVE: CASE EVENT DATE: 20140217
